FAERS Safety Report 20083300 (Version 1)
Quarter: 2021Q4

REPORT INFORMATION
  Report Type: Spontaneous
  Country: DE (occurrence: DE)
  Receive Date: 20211117
  Receipt Date: 20211117
  Transmission Date: 20220303
  Serious: Yes (Hospitalization, Other)
  Sender: FDA-Public Use
  Company Number: DE-ADRED-07084-01

PATIENT
  Age: 89 Year
  Sex: Male
  Weight: 75 kg

DRUGS (8)
  1. TORSEMIDE [Suspect]
     Active Substance: TORSEMIDE
     Indication: Product used for unknown indication
     Dosage: 5 MILLIGRAM, QD, 10 MG, 0.5-0-0-0, TABLETTEN
     Route: 048
  2. HYDROCHLOROTHIAZIDE\RAMIPRIL [Suspect]
     Active Substance: HYDROCHLOROTHIAZIDE\RAMIPRIL
     Indication: Product used for unknown indication
     Dosage: 0.5 DOSAGE FORM, QD, 25|5 MG, 0.5-0-0-0, TABLETTEN
     Route: 048
  3. CITALOPRAM [Concomitant]
     Active Substance: CITALOPRAM HYDROBROMIDE
     Dosage: 20 MILLIGRAM, QD, 20 MG, 1-0-0-0, TABLETTEN
     Route: 048
  4. DONEPEZIL [Concomitant]
     Active Substance: DONEPEZIL
     Dosage: 10 MILLIGRAM, QD, 10 MG, 1-0-0-0, TABLETTEN
     Route: 048
  5. SIMVASTATIN [Concomitant]
     Active Substance: SIMVASTATIN
     Dosage: 20 MILLIGRAM, QD, 20 MG, 0-0-1-0, TABLETTEN
     Route: 048
  6. DIMETHINDENE [Concomitant]
     Active Substance: DIMETHINDENE
     Dosage: 1 MILLIGRAM, PRN, 1 MG, BEDARF, TROPFEN
     Route: 048
  7. ALLOPURINOL [Concomitant]
     Active Substance: ALLOPURINOL
     Dosage: 100 MILLIGRAM, QD, 100 MG, 1-0-0-0, TABLETTEN
     Route: 048
  8. ASPIRIN [Concomitant]
     Active Substance: ASPIRIN
     Dosage: 100 MILLIGRAM, QD, 100 MG, 1-0-0-0, TABLETTEN
     Route: 048

REACTIONS (4)
  - General physical health deterioration [Unknown]
  - Acute kidney injury [Unknown]
  - Fatigue [Unknown]
  - Weight decreased [Unknown]
